FAERS Safety Report 9544162 (Version 1)
Quarter: 2013Q3

REPORT INFORMATION
  Report Type: Report from Study
  Country: NO (occurrence: NO)
  Receive Date: 20130923
  Receipt Date: 20130923
  Transmission Date: 20140515
  Serious: Yes (Death)
  Sender: FDA-Public Use
  Company Number: PHHY2013NO104870

PATIENT
  Age: 66 Year
  Sex: Male
  Weight: 78 kg

DRUGS (7)
  1. METHOTREXATE [Suspect]
     Indication: RHEUMATOID ARTHRITIS
     Dosage: 25 MG, WEEKLY
     Route: 048
     Dates: start: 20120207, end: 201211
  2. ENBREL [Suspect]
     Indication: RHEUMATOID ARTHRITIS
     Dosage: 50 MG, WEEKLY
     Route: 058
     Dates: start: 20120814, end: 201211
  3. CALCIGRAN FORTE [Concomitant]
     Indication: OSTEOPENIA
     Dosage: 500 MG, UNK
     Route: 048
     Dates: start: 20120207
  4. ZESTRIL [Concomitant]
     Indication: MIGRAINE
     Route: 048
  5. FOLSYRE NAF [Concomitant]
     Dosage: 1 MG, UNK
     Route: 048
     Dates: start: 20120207, end: 201211
  6. IMIGRAN [Concomitant]
     Indication: MIGRAINE
  7. FOSAMAX [Concomitant]
     Indication: OSTEOPENIA
     Dosage: 70 MG, UNK
     Route: 048
     Dates: start: 20120309

REACTIONS (4)
  - Renal failure [Fatal]
  - Acute respiratory failure [Fatal]
  - Pneumocystis jirovecii pneumonia [Fatal]
  - Dyspnoea [Fatal]
